FAERS Safety Report 24714897 (Version 2)
Quarter: 2025Q3

REPORT INFORMATION
  Report Type: Spontaneous
  Country: US (occurrence: US)
  Receive Date: 20241210
  Receipt Date: 20250816
  Transmission Date: 20251020
  Serious: No
  Sender: ALEXION PHARMACEUTICALS
  Company Number: US-AstraZeneca-CH-00764293AP

PATIENT
  Sex: Male

DRUGS (1)
  1. BREZTRI [Suspect]
     Active Substance: BUDESONIDE\FORMOTEROL\GLYCOPYRROLATE
     Indication: Chronic obstructive pulmonary disease
     Dosage: 160 MICROGRAM, BID

REACTIONS (9)
  - Wrong technique in product usage process [Unknown]
  - Incorrect dose administered [Unknown]
  - Wrong technique in device usage process [Unknown]
  - Aphonia [Recovered/Resolved]
  - Wrong technique in product usage process [Unknown]
  - Device malfunction [Unknown]
  - Hypersensitivity [Recovered/Resolved]
  - Device issue [Unknown]
  - Device defective [Unknown]
